FAERS Safety Report 7357062-1 (Version None)
Quarter: 2011Q1

REPORT INFORMATION
  Report Type: 
  Country: None (occurrence: None)
  Receive Date: 20110308
  Receipt Date: 20110222
  Transmission Date: 20110831
  Serious: Yes (Other)
  Sender: FDA-Public Use
  Company Number: MSER20110007

PATIENT
  Age: 25 Year
  Sex: Female

DRUGS (3)
  1. FENTANYL [Suspect]
     Indication: ANALGESIC THERAPY
     Dosage: HOURLY 2 DOSES,  INTRATHECAL
     Route: 039
  2. BUPIVACAINE HCL [Suspect]
     Indication: ANALGESIC THERAPY
     Dosage: HOURLY 2 DOSES, INTRATHECAL
     Route: 039
  3. MORPHINE SULFATE [Suspect]
     Indication: PRODUCT USED FOR UNKNOWN INDICATION
     Dosage: 150 MG, 1 IN 1 D, INTRATHECAL
     Route: 039

REACTIONS (4)
  - MENINGITIS HERPES [None]
  - STRESS [None]
  - CAESAREAN SECTION [None]
  - DRUG EXPOSURE DURING PREGNANCY [None]
